FAERS Safety Report 25780695 (Version 1)
Quarter: 2025Q3

REPORT INFORMATION
  Report Type: Spontaneous
  Country: US (occurrence: US)
  Receive Date: 20250909
  Receipt Date: 20250909
  Transmission Date: 20251021
  Serious: Yes (Life-Threatening, Hospitalization)
  Sender: AMGEN
  Company Number: US-AMGEN-USASP2025174637

PATIENT
  Age: 43 Year
  Sex: Female

DRUGS (3)
  1. PREDNISONE [Suspect]
     Active Substance: PREDNISONE
     Indication: Graves^ disease
     Route: 065
  2. PROPRANOLOL [Concomitant]
     Active Substance: PROPRANOLOL HYDROCHLORIDE
     Indication: Graves^ disease
  3. CHOLESTYRAMINE [Concomitant]
     Active Substance: CHOLESTYRAMINE
     Indication: Graves^ disease

REACTIONS (4)
  - Polyuria [Unknown]
  - Right atrial pressure increased [Unknown]
  - Hypervolaemia [Unknown]
  - Off label use [Unknown]
